FAERS Safety Report 9131586 (Version 1)
Quarter: 2013Q1

REPORT INFORMATION
  Report Type: Spontaneous
  Country: US (occurrence: US)
  Receive Date: 20130301
  Receipt Date: 20130301
  Transmission Date: 20140127
  Serious: No
  Sender: FDA-Public Use
  Company Number: US-PFIZER INC-2013073011

PATIENT
  Age: 59 Year
  Sex: Male
  Weight: 70.3 kg

DRUGS (3)
  1. CHANTIX [Suspect]
     Indication: SMOKING CESSATION THERAPY
     Dosage: 0.5 MG, 1X/DAY
     Route: 048
     Dates: start: 20130211, end: 201302
  2. CHANTIX [Suspect]
     Dosage: UNK
     Route: 048
     Dates: start: 201302
  3. DILANTIN [Concomitant]
     Dosage: UNK

REACTIONS (3)
  - Sleep disorder [Unknown]
  - Abnormal dreams [Unknown]
  - Nightmare [Unknown]
